FAERS Safety Report 14993155 (Version 7)
Quarter: 2019Q1

REPORT INFORMATION
  Report Type: Spontaneous
  Country: ES (occurrence: ES)
  Receive Date: 20180610
  Receipt Date: 20190207
  Transmission Date: 20190417
  Serious: Yes (Other)
  Sender: FDA-Public Use
  Company Number: ES-MYLANLABS-2018M1038417

PATIENT
  Age: 53 Year
  Sex: Male

DRUGS (17)
  1. TEMOZOLOMIDE. [Suspect]
     Active Substance: TEMOZOLOMIDE
     Indication: PARAGANGLION NEOPLASM MALIGNANT
     Dosage: 75 MG/M2 FOR 21 DAYS EVERY 28 DAYS
     Route: 048
     Dates: start: 201605, end: 201707
  2. DENOSUMAB [Concomitant]
     Active Substance: DENOSUMAB
     Indication: PARAGANGLION NEOPLASM
     Dosage: 120 MG EVERY 28 DAYS
     Route: 065
     Dates: start: 201411
  3. LANREOTIDE ACETATE [Concomitant]
     Active Substance: LANREOTIDE ACETATE
     Dosage: 120 MG, UNK
     Route: 065
  4. DENOSUMAB [Concomitant]
     Active Substance: DENOSUMAB
     Indication: PARAGANGLION NEOPLASM MALIGNANT
     Dosage: UNK
     Route: 065
  5. TEMOZOLOMIDE. [Suspect]
     Active Substance: TEMOZOLOMIDE
     Indication: PARAGANGLION NEOPLASM
     Dosage: 75 MG/M2, CYCLE, 75 MG/M^2 FOR 21 DAYS EVERY 28 DAYS
     Route: 065
     Dates: start: 201605, end: 201707
  6. TEMOZOLOMIDE. [Suspect]
     Active Substance: TEMOZOLOMIDE
     Indication: PANCREATIC NEUROENDOCRINE TUMOUR METASTATIC
  7. SOMATULINA [Suspect]
     Active Substance: LANREOTIDE ACETATE
     Indication: PANCREATIC NEUROENDOCRINE TUMOUR METASTATIC
     Dosage: 120 MG, Q2W
     Route: 065
     Dates: start: 201411, end: 2016
  8. PROPRANOLOL [Concomitant]
     Active Substance: PROPRANOLOL HYDROCHLORIDE
     Indication: HYPERTENSION
     Dosage: 120 MG, QD
     Route: 065
     Dates: start: 201506, end: 201605
  9. DOXAZOSIN [Concomitant]
     Active Substance: DOXAZOSIN\DOXAZOSIN MESYLATE
     Indication: HYPERTENSION
     Dosage: 8 MG, QD
     Route: 065
     Dates: start: 2014
  10. SOMATULINA [Suspect]
     Active Substance: LANREOTIDE ACETATE
     Indication: PARAGANGLION NEOPLASM MALIGNANT
     Dosage: 120 MILLIGRAM, Q3W
     Route: 065
     Dates: start: 2016, end: 201701
  11. LANREOTIDE ACETATE [Concomitant]
     Active Substance: LANREOTIDE ACETATE
     Indication: PARAGANGLION NEOPLASM
     Dosage: SYSTEMIC TREATMENT  EVERY 14 DAYSUNK
     Route: 065
     Dates: start: 201411, end: 2016
  12. DOXAZOSIN [Concomitant]
     Active Substance: DOXAZOSIN\DOXAZOSIN MESYLATE
     Indication: PARAGANGLION NEOPLASM
  13. DENOSUMAB [Concomitant]
     Active Substance: DENOSUMAB
     Indication: PANCREATIC NEUROENDOCRINE TUMOUR METASTATIC
     Dosage: 120 MG, UNK
     Route: 065
     Dates: start: 201411
  14. IRBESARTAN AND HYDROCHLOROTHIAZIDE [Concomitant]
     Active Substance: HYDROCHLOROTHIAZIDE\IRBESARTAN
     Indication: HYPERTENSION
     Dosage: (1250MG/12.5MG, RESPECTIVELY)
     Route: 065
  15. LANREOTIDE ACETATE [Concomitant]
     Active Substance: LANREOTIDE ACETATE
     Dosage: 120 MG, Q3W
     Route: 065
     Dates: start: 2016, end: 201701
  16. PROPRANOLOL [Concomitant]
     Active Substance: PROPRANOLOL HYDROCHLORIDE
     Dosage: 240 MG, QD,AN INCREASE DOSE UP TO 3 MG/KG/DAY (240 MG/DAY)
     Route: 065
     Dates: start: 201605
  17. BISOPROLOL                         /00802602/ [Concomitant]
     Active Substance: BISOPROLOL
     Indication: HYPERTENSION
     Dosage: 10 MG, QD
     Route: 065

REACTIONS (10)
  - Potentiating drug interaction [Unknown]
  - Lymphopenia [Unknown]
  - Diarrhoea [Unknown]
  - Hyperglycaemia [Unknown]
  - Thrombocytopenia [Unknown]
  - Nausea [Unknown]
  - Off label use [Unknown]
  - Inappropriate schedule of product administration [Unknown]
  - Vomiting [Unknown]
  - Product use in unapproved indication [Unknown]

NARRATIVE: CASE EVENT DATE: 2016
